FAERS Safety Report 17475356 (Version 4)
Quarter: 2023Q4

REPORT INFORMATION
  Report Type: Spontaneous
  Country: US (occurrence: US)
  Receive Date: 20200228
  Receipt Date: 20231020
  Transmission Date: 20240110
  Serious: No
  Sender: FDA-Public Use
  Company Number: US-PFIZER INC-2020087279

PATIENT
  Age: 64 Year
  Sex: Female

DRUGS (1)
  1. XELJANZ [Suspect]
     Active Substance: TOFACITINIB CITRATE
     Dosage: 5 MG, UNK

REACTIONS (6)
  - Headache [Unknown]
  - Disturbance in attention [Unknown]
  - Pain [Unknown]
  - Arthritis [Unknown]
  - Peripheral swelling [Unknown]
  - Hypoaesthesia [Unknown]
